FAERS Safety Report 5542318-5 (Version None)
Quarter: 2007Q4

REPORT INFORMATION
  Report Type: 
  Country: None (occurrence: None)
  Receive Date: 20071210
  Receipt Date: 20071204
  Transmission Date: 20080405
  Serious: Yes (Other)
  Sender: FDA-Public Use
  Company Number: US-ASTRAZENECA-2007UW27587

PATIENT
  Age: 80 Year
  Sex: Male
  Weight: 86.6 kg

DRUGS (8)
  1. NEXIUM [Suspect]
     Indication: STOMACH DISCOMFORT
     Route: 048
     Dates: start: 20030101, end: 20070101
  2. NEXIUM [Suspect]
     Indication: ULCER
     Route: 048
     Dates: start: 20030101, end: 20070101
  3. LOVASTATIN [Concomitant]
  4. ENALAPRIL [Concomitant]
  5. METOPROLOL [Concomitant]
  6. PREDNISONE [Concomitant]
  7. SUCRALFATE [Concomitant]
  8. PREVACID [Concomitant]

REACTIONS (2)
  - GASTRINOMA [None]
  - NEOPLASM MALIGNANT [None]
